FAERS Safety Report 6913913-3 (Version None)
Quarter: 2010Q3

REPORT INFORMATION
  Report Type: 
  Country: None (occurrence: None)
  Receive Date: 20100809
  Receipt Date: 20100730
  Transmission Date: 20110219
  Serious: Yes (Hospitalization, Other)
  Sender: FDA-Public Use
  Company Number: US-SANOFI-AVENTIS-2010SA040366

PATIENT
  Age: 65 Year
  Sex: Female
  Weight: 78.93 kg

DRUGS (7)
  1. MULTAQ [Suspect]
     Route: 048
     Dates: start: 20100628, end: 20100703
  2. CIPROFLOXACIN [Suspect]
     Route: 065
  3. WARFARIN [Concomitant]
  4. BUPROPION HCL [Concomitant]
     Indication: DEPRESSION
  5. PREMPRO [Concomitant]
     Indication: POSTMENOPAUSE
     Dosage: 0.3/1.5 MG DAILY
  6. CITALOPRAM [Concomitant]
     Indication: ANXIETY
  7. FENOFIBRATE [Concomitant]

REACTIONS (6)
  - CARDIAC ARREST [None]
  - DRUG INTERACTION [None]
  - DYSPNOEA [None]
  - NERVOUSNESS [None]
  - PULMONARY OEDEMA [None]
  - SINUS TACHYCARDIA [None]
